FAERS Safety Report 8003448-1 (Version None)
Quarter: 2011Q4

REPORT INFORMATION
  Report Type: 
  Country: None (occurrence: None)
  Receive Date: 20111222
  Receipt Date: 20111222
  Transmission Date: 20120403
  Serious: Yes (Life-Threatening)
  Sender: FDA-Public Use
  Company Number: None

PATIENT
  Age: 68 Year
  Sex: Male
  Weight: 105 kg

DRUGS (2)
  1. EFFIENT [Suspect]
     Indication: ATRIAL FIBRILLATION
     Dosage: 5 MG
     Route: 048
     Dates: start: 20110503, end: 20110505
  2. DABIGATRAN [Concomitant]

REACTIONS (4)
  - SPLENECTOMY [None]
  - GASTROINTESTINAL INJURY [None]
  - HAEMORRHAGE [None]
  - HAEMATOMA [None]
